FAERS Safety Report 24909056 (Version 6)
Quarter: 2025Q4

REPORT INFORMATION
  Report Type: Report from Study
  Country: EU (occurrence: EU)
  Receive Date: 20250131
  Receipt Date: 20251010
  Transmission Date: 20260117
  Serious: Yes (Death, Hospitalization)
  Sender: ABBVIE
  Company Number: EU-ABBVIE-6108280

PATIENT
  Age: 76 Year
  Sex: Male
  Weight: 51 kg

DRUGS (14)
  1. FOSCARBIDOPA\FOSLEVODOPA [Suspect]
     Active Substance: FOSCARBIDOPA\FOSLEVODOPA
     Indication: Parkinson^s disease
     Dosage: FLD/FCD DOSE: 0.3 FLOW: 0.25?DURATION OF THE DAILY INFUSION: 24 HOURS?DAILY DOSE OF FOSLEVODOPA/F...
     Route: 058
     Dates: start: 20241203
  2. FOSCARBIDOPA\FOSLEVODOPA [Suspect]
     Active Substance: FOSCARBIDOPA\FOSLEVODOPA
     Dosage: DURATION OF THE DAILY INFUSION: 24 HOURS ?FLOW RATE: 0.27 ML/H?DAILY DOSE: 6.48 ?EXTRA DOSE: 0.3M...
     Route: 058
     Dates: start: 20241205, end: 20241206
  3. FOSCARBIDOPA\FOSLEVODOPA [Suspect]
     Active Substance: FOSCARBIDOPA\FOSLEVODOPA
     Dosage: DURATION OF THE DAILY INFUSION: 24 HOURS ?FLOW RATE: 0.23 ML/H ?DAILY DOSE: 5.52 ?EXTRA DOSE: 0.3ML
     Route: 058
     Dates: start: 20241206, end: 20241209
  4. FOSCARBIDOPA\FOSLEVODOPA [Suspect]
     Active Substance: FOSCARBIDOPA\FOSLEVODOPA
     Dosage: DURATION OF THE DAILY INFUSION: 24 HOURS ?FLOW RATE: 0.21 ML/H ?DAILY DOSE: 5.04
     Route: 058
     Dates: start: 20241209, end: 20241211
  5. FOSCARBIDOPA\FOSLEVODOPA [Suspect]
     Active Substance: FOSCARBIDOPA\FOSLEVODOPA
     Dosage: DURATION OF THE DAILY INFUSION: 24 HOURS?FLOW RATE: 0.20 ML/H ?DAILY DOSE OF FOSLEVODOPA/FOSCARBI...
     Route: 058
     Dates: start: 20241211, end: 20250108
  6. FOSCARBIDOPA\FOSLEVODOPA [Suspect]
     Active Substance: FOSCARBIDOPA\FOSLEVODOPA
     Dosage: DURATION OF THE DAILY INFUSION: 24 HOURS ?FLOW RATE: 0.18 ML/H ?DAILY DOSE OF FOSLEVODOPA/FOSCARB...
     Route: 058
     Dates: start: 20250108, end: 20250122
  7. FOSCARBIDOPA\FOSLEVODOPA [Suspect]
     Active Substance: FOSCARBIDOPA\FOSLEVODOPA
     Dosage: DURATION OF THE DAILY INFUSION: 24 HOURS ?FLOW RATE: 0.17 ML/H ?DAILY DOSE OF FOSLEVODOPA/FOSCARB...
     Route: 058
     Dates: start: 20250122, end: 20250123
  8. FOSCARBIDOPA\FOSLEVODOPA [Suspect]
     Active Substance: FOSCARBIDOPA\FOSLEVODOPA
     Dosage: DURATION OF THE DAILY INFUSION: 24 HOURS?FLOW RATE: 0.16 ML/H ?DAILY DOSE OF FOSLEVODOPA/FOSCARBI...
     Route: 058
     Dates: start: 20250123, end: 20250124
  9. FOSCARBIDOPA\FOSLEVODOPA [Suspect]
     Active Substance: FOSCARBIDOPA\FOSLEVODOPA
     Dosage: DURATION OF THE DAILY INFUSION: 24 HOURS ?FLOW RATE: 0.15 ML/H ?DAILY DOSE OF FOSLEVODOPA/FOSCARB...
     Route: 058
     Dates: start: 20250124
  10. FOSCARBIDOPA\FOSLEVODOPA [Suspect]
     Active Substance: FOSCARBIDOPA\FOSLEVODOPA
     Route: 058
     Dates: start: 20250409
  11. AMANTADINE HYDROCHLORIDE [Concomitant]
     Active Substance: AMANTADINE HYDROCHLORIDE
     Indication: Parkinson^s disease
     Dosage: DAILY DOSE
     Dates: start: 20241106, end: 20241203
  12. BENSERAZIDE HYDROCHLORIDE\LEVODOPA [Concomitant]
     Active Substance: BENSERAZIDE HYDROCHLORIDE\LEVODOPA
     Indication: Parkinson^s disease
     Dosage: 937.5 UG?DAILY DOSE
     Dates: end: 20241203
  13. BENSERAZIDE HYDROCHLORIDE\LEVODOPA [Concomitant]
     Active Substance: BENSERAZIDE HYDROCHLORIDE\LEVODOPA
     Indication: Parkinson^s disease
     Dosage: 125MG?DAILY DOSE
     Dates: start: 20241211
  14. DESMOPRESSIN [Concomitant]
     Active Substance: DESMOPRESSIN
     Indication: Parkinson^s disease
     Dosage: CONTINUOUS TREATMENT

REACTIONS (18)
  - Aspiration [Fatal]
  - Confusional state [Not Recovered/Not Resolved]
  - Loss of personal independence in daily activities [Not Recovered/Not Resolved]
  - Urinary incontinence [Not Recovered/Not Resolved]
  - Dust inhalation pneumopathy [Not Recovered/Not Resolved]
  - Malnutrition [Not Recovered/Not Resolved]
  - Decubitus ulcer [Not Recovered/Not Resolved]
  - Constipation [Not Recovered/Not Resolved]
  - Dehydration [Not Recovered/Not Resolved]
  - Acute kidney injury [Not Recovered/Not Resolved]
  - Fall [Not Recovered/Not Resolved]
  - Head injury [Not Recovered/Not Resolved]
  - Hallucination [Not Recovered/Not Resolved]
  - General physical health deterioration [Not Recovered/Not Resolved]
  - Unevaluable event [Unknown]
  - Pallor [Unknown]
  - Oesophageal adenocarcinoma [Unknown]
  - Feeding disorder [Unknown]

NARRATIVE: CASE EVENT DATE: 20241201
